FAERS Safety Report 8385230-9 (Version None)
Quarter: 2012Q2

REPORT INFORMATION
  Report Type: 
  Country: None (occurrence: None)
  Receive Date: 20120525
  Receipt Date: 20120517
  Transmission Date: 20120825
  Serious: Yes (Hospitalization)
  Sender: FDA-Public Use
  Company Number: US-BIOGENIDEC-2012BI017408

PATIENT
  Age: 60 Year
  Sex: Male

DRUGS (4)
  1. AVONEX [Suspect]
     Route: 030
     Dates: start: 20001201, end: 20030320
  2. AVONEX [Suspect]
     Route: 030
     Dates: start: 20000401, end: 20000101
  3. AVONEX [Suspect]
     Route: 030
     Dates: start: 20030920
  4. AVONEX [Suspect]
     Indication: MULTIPLE SCLEROSIS
     Route: 030
     Dates: start: 20000301, end: 20000101

REACTIONS (2)
  - INFECTION [None]
  - NEPHROLITHIASIS [None]
